FAERS Safety Report 23252888 (Version 1)
Quarter: 2023Q4

REPORT INFORMATION
  Report Type: Spontaneous
  Country: US (occurrence: US)
  Receive Date: 20231201
  Receipt Date: 20231201
  Transmission Date: 20240110
  Serious: No
  Sender: FDA-Public Use
  Company Number: US-ORG100016242-2023000212

PATIENT
  Age: 75 Year
  Sex: Female

DRUGS (1)
  1. ZILRETTA [Suspect]
     Active Substance: TRIAMCINOLONE ACETONIDE
     Indication: Arthralgia
     Dosage: DOSAGE NOT PROVIDED
     Route: 014
     Dates: start: 202304, end: 202304

REACTIONS (2)
  - Therapeutic response shortened [Unknown]
  - Off label use [Unknown]
